FAERS Safety Report 8919048 (Version 1)
Quarter: 2012Q4

REPORT INFORMATION
  Report Type: Spontaneous
  Country: DE (occurrence: None)
  Receive Date: 20121114
  Receipt Date: 20121114
  Transmission Date: 20130627
  Serious: Yes (Hospitalization)
  Sender: FDA-Public Use
  Company Number: USA/GER/12/0026582

PATIENT
  Age: 31 Year
  Sex: Female

DRUGS (5)
  1. LAMOTRIGINE [Suspect]
     Indication: EPILEPSY
  2. VALPROIC ACID [Suspect]
     Indication: EPILEPSY
  3. MESUXIMIDE [Suspect]
     Indication: EPILEPSY
  4. PRIMIDONE [Suspect]
     Indication: TREMOR
  5. PHENOBARBITAL [Suspect]
     Indication: DRUG USE FOR UNKNOWN INDICATION

REACTIONS (15)
  - Drug interaction [None]
  - Resting tremor [None]
  - Psychomotor skills impaired [None]
  - General physical health deterioration [None]
  - Nausea [None]
  - Ataxia [None]
  - Epilepsy [None]
  - Toxicity to various agents [None]
  - Anticonvulsant drug level decreased [None]
  - Fall [None]
  - Somnolence [None]
  - Vomiting [None]
  - Cerebral atrophy [None]
  - Haemodialysis [None]
  - Grand mal convulsion [None]
